FAERS Safety Report 6442068-7 (Version None)
Quarter: 2009Q4

REPORT INFORMATION
  Report Type: 
  Country: None (occurrence: None)
  Receive Date: 20091116
  Receipt Date: 20091103
  Transmission Date: 20100525
  Serious: Yes (Other)
  Sender: FDA-Public Use
  Company Number: PHHY2009MA48071

PATIENT
  Age: 19 Year
  Sex: Male

DRUGS (1)
  1. CYCLOSPORINE [Suspect]
     Indication: APLASTIC ANAEMIA
     Dosage: 4 MG/KG DAILY

REACTIONS (2)
  - GINGIVAL HYPERTROPHY [None]
  - LIP DISORDER [None]
